FAERS Safety Report 5124432-1 (Version None)
Quarter: 2006Q4

REPORT INFORMATION
  Report Type: 
  Country: None (occurrence: None)
  Receive Date: 20060816
  Receipt Date: 20060627
  Transmission Date: 20070319
  Serious: No
  Sender: FDA-Public Use
  Company Number: US200606005820

PATIENT
  Sex: Male

DRUGS (1)
  1. CIALIS [Suspect]
     Indication: LIBIDO DECREASED
     Dosage: 20 MG
     Dates: start: 20050101

REACTIONS (1)
  - DRUG INEFFECTIVE [None]
